FAERS Safety Report 5949412-5 (Version None)
Quarter: 2008Q4

REPORT INFORMATION
  Report Type: 
  Country: None (occurrence: None)
  Receive Date: 20081112
  Receipt Date: 20081031
  Transmission Date: 20090506
  Serious: Yes (Hospitalization, Other)
  Sender: FDA-Public Use
  Company Number: PHHY2008ES26727

PATIENT
  Age: 36 Year
  Sex: Male

DRUGS (3)
  1. TEGRETOL [Suspect]
     Indication: EPILEPSY
     Dosage: 1200 MG DAILY
     Route: 048
     Dates: start: 20070303
  2. LAMICTAL [Suspect]
     Indication: EPILEPSY
     Dosage: 300 MG DAILY
     Dates: start: 20070303, end: 20070306
  3. KEPPRA [Suspect]
     Indication: EPILEPSY
     Dosage: 100 MG DAILY
     Route: 048
     Dates: start: 20070303, end: 20070306

REACTIONS (3)
  - DYSARTHRIA [None]
  - FEELING ABNORMAL [None]
  - MOTION SICKNESS [None]
